FAERS Safety Report 26094825 (Version 1)
Quarter: 2025Q4

REPORT INFORMATION
  Report Type: Report from Study
  Country: US (occurrence: US)
  Receive Date: 20251126
  Receipt Date: 20251126
  Transmission Date: 20260118
  Serious: Yes (Other)
  Sender: ABBVIE
  Company Number: US-ABBVIE-6289476

PATIENT
  Sex: Male
  Weight: 9 kg

DRUGS (5)
  1. SKYRIZI [Suspect]
     Active Substance: RISANKIZUMAB-RZAA
     Indication: Maternal exposure timing unspecified
  2. DIPHTHERIA AND TETANUS TOXOIDS AND ACELLULAR PERTUSSIS VACCINE ADSORBE [Concomitant]
     Active Substance: DIPHTHERIA AND TETANUS TOXOIDS AND ACELLULAR PERTUSSIS VACCINE ADSORBED
     Indication: Immunisation
     Dosage: FREQUENCY OTHER
     Route: 030
     Dates: start: 20250509, end: 20250509
  3. POLIOMYELITIS VACCINE NOS [Concomitant]
     Active Substance: POLIOMYELITIS VACCINE
     Indication: Polio immunisation
     Dosage: FREQUENCY: OTHER
     Route: 030
     Dates: start: 20250509, end: 20250509
  4. PNEUMOCOCCAL VACCINE NOS [Concomitant]
     Active Substance: PNEUMOCOCCAL VACCINE
     Indication: Pneumococcal immunisation
     Dosage: FREQUENCY: OTHER
     Route: 030
     Dates: start: 20250509, end: 20250509
  5. HAEMOPHILUS INFLUENZAE TYPE B [Concomitant]
     Active Substance: HAEMOPHILUS INFLUENZAE TYPE B
     Indication: Haemophilus influenzae type b immunisation
     Dosage: TIME INTERVAL: TOTAL: ONCE?FREQUENCY: OTHER
     Route: 030
     Dates: start: 20250307, end: 20250307

REACTIONS (4)
  - Growth retardation [Recovered/Resolved]
  - Fall [Recovered/Resolved]
  - Foetal exposure during pregnancy [Unknown]
  - Torticollis [Recovered/Resolved]

NARRATIVE: CASE EVENT DATE: 20250301
